FAERS Safety Report 6468332-3 (Version None)
Quarter: 2009Q4

REPORT INFORMATION
  Report Type: 
  Country: None (occurrence: None)
  Receive Date: 20091203
  Receipt Date: 20081124
  Transmission Date: 20100525
  Serious: No
  Sender: FDA-Public Use
  Company Number: US-AMGEN-KDL320676

PATIENT
  Sex: Male

DRUGS (2)
  1. ENBREL [Suspect]
     Indication: PSORIASIS
     Route: 058
     Dates: start: 20071201
  2. CYCLOSPORINE [Concomitant]
     Route: 048

REACTIONS (5)
  - DIZZINESS [None]
  - DRUG EFFECT DECREASED [None]
  - HEADACHE [None]
  - HYPOTENSION [None]
  - PSORIASIS [None]
